FAERS Safety Report 15656734 (Version 1)
Quarter: 2018Q4

REPORT INFORMATION
  Report Type: Spontaneous
  Country: US (occurrence: US)
  Receive Date: 20181126
  Receipt Date: 20181126
  Transmission Date: 20190205
  Serious: Yes (Death, Hospitalization, Other)
  Sender: FDA-Public Use
  Company Number: US-SAKK-2018SA156791AA

PATIENT
  Age: 62 Year
  Sex: Female

DRUGS (1)
  1. LANTUS SOLOSTAR [Suspect]
     Active Substance: INSULIN GLARGINE
     Dosage: 26U AM, 80U EVENING
     Dates: end: 20180528

REACTIONS (3)
  - Cardiac arrest [Fatal]
  - Pulmonary oedema [Unknown]
  - Diabetes mellitus inadequate control [Not Recovered/Not Resolved]
